FAERS Safety Report 11814026 (Version 3)
Quarter: 2016Q1

REPORT INFORMATION
  Report Type: Report from Study
  Country: JP (occurrence: JP)
  Receive Date: 20151209
  Receipt Date: 20160302
  Transmission Date: 20160525
  Serious: Yes (Other)
  Sender: FDA-Public Use
  Company Number: JP-PFIZER INC-2015232633

PATIENT
  Age: 59 Year
  Sex: Female
  Weight: 65 kg

DRUGS (26)
  1. BONALON [Concomitant]
     Active Substance: ALENDRONATE SODIUM
     Indication: PROPHYLAXIS
     Dosage: 35 MG, WEEKLY
     Route: 048
     Dates: start: 20150605
  2. AMIODARONE HYDROCHLORIDE. [Concomitant]
     Active Substance: AMIODARONE HYDROCHLORIDE
     Dosage: 100 MG, 1X/DAY
     Route: 048
  3. FORSENID [Concomitant]
     Dosage: 24 MG, AS NEEDED
     Route: 048
  4. HEPARIN SODIUM. [Concomitant]
     Active Substance: HEPARIN SODIUM
     Indication: INTRA-AORTIC BALLOON PLACEMENT
     Dosage: UNK
     Route: 051
     Dates: start: 20150424
  5. WARFARIN POTASSIUM [Concomitant]
     Active Substance: WARFARIN POTASSIUM
     Dosage: 2.5 MG, 1X/DAY
     Route: 048
     Dates: start: 20150522, end: 20150524
  6. WARFARIN POTASSIUM [Concomitant]
     Active Substance: WARFARIN POTASSIUM
     Dosage: 3 MG, 1X/DAY
     Route: 048
     Dates: start: 20150825
  7. PREDONINE [Concomitant]
     Active Substance: PREDNISOLONE\PREDNISOLONE ACETATE\PREDNISOLONE SODIUM SUCCINATE
     Dosage: 25 MG, 1X/DAY
     Route: 048
     Dates: start: 20150602, end: 20150611
  8. PREDONINE [Concomitant]
     Active Substance: PREDNISOLONE\PREDNISOLONE ACETATE\PREDNISOLONE SODIUM SUCCINATE
     Dosage: 20 MG, 1X/DAY
     Route: 048
     Dates: start: 20150612, end: 20150625
  9. GOODMIN [Suspect]
     Active Substance: BROTIZOLAM
     Dosage: 0.25 MG, AS NEEDED
     Route: 048
  10. AMIODARONE HYDROCHLORIDE. [Concomitant]
     Active Substance: AMIODARONE HYDROCHLORIDE
     Dosage: 50 MG, 1X/DAY
     Route: 048
  11. SAMSCA [Concomitant]
     Active Substance: TOLVAPTAN
     Dosage: 3.25 MG, 1X/DAY
     Route: 048
     Dates: start: 20150513
  12. COVERSYL [Concomitant]
     Active Substance: PERINDOPRIL
     Dosage: 2 MG, 1X/DAY
     Route: 048
     Dates: start: 20150518
  13. NOVASTAN [Suspect]
     Active Substance: ARGATROBAN
     Indication: HEPARIN-INDUCED THROMBOCYTOPENIA
     Dosage: UNK (0.6 UG/KG,1 MIN)
     Route: 041
     Dates: start: 20150512, end: 20150522
  14. DOBUTAMINE [Concomitant]
     Active Substance: DOBUTAMINE\DOBUTAMINE HYDROCHLORIDE
     Dosage: UNK
     Route: 042
     Dates: start: 20150423, end: 20150520
  15. HANP [Concomitant]
     Active Substance: CARPERITIDE
     Dosage: UNK
     Route: 042
     Dates: start: 20150502, end: 20150520
  16. AMIODARONE HYDROCHLORIDE. [Concomitant]
     Active Substance: AMIODARONE HYDROCHLORIDE
     Dosage: 400 MG, 1X/DAY
     Route: 048
     Dates: start: 20150505
  17. WARFARIN POTASSIUM [Concomitant]
     Active Substance: WARFARIN POTASSIUM
     Dosage: 5 MG, 1X/DAY
     Route: 048
     Dates: start: 20150520, end: 20150521
  18. WARFARIN POTASSIUM [Concomitant]
     Active Substance: WARFARIN POTASSIUM
     Dosage: 2 MG, 1X/DAY
     Route: 048
     Dates: start: 20150525, end: 20150727
  19. ALLEGRA [Concomitant]
     Active Substance: FEXOFENADINE HYDROCHLORIDE
     Dosage: 120 MG, 1X/DAY
     Route: 065
     Dates: start: 20150517, end: 20150518
  20. WARFARIN POTASSIUM [Concomitant]
     Active Substance: WARFARIN POTASSIUM
     Dosage: 2.5 MG, 1X/DAY
     Route: 048
     Dates: start: 20150728
  21. PREDONINE [Concomitant]
     Active Substance: PREDNISOLONE\PREDNISOLONE ACETATE\PREDNISOLONE SODIUM SUCCINATE
     Dosage: 15 MG, 1X/DAY
     Route: 048
     Dates: start: 20150626
  22. FAMOTIDINE. [Concomitant]
     Active Substance: FAMOTIDINE
     Indication: PROPHYLAXIS
     Dosage: 40 MG, 1X/DAY
     Route: 048
     Dates: start: 20150602
  23. MEROPEN [Concomitant]
     Active Substance: MEROPENEM
     Dosage: 0.5 G, 2X/DAY
     Route: 042
     Dates: start: 20150505, end: 20150513
  24. ALDACTONE A [Concomitant]
     Active Substance: SPIRONOLACTONE
     Dosage: 12.5 MG, 1X/DAY
     Route: 048
     Dates: start: 20150619
  25. TAKEPRON [Suspect]
     Active Substance: LANSOPRAZOLE
     Dosage: 15 MG, 1X/DAY
     Route: 048
     Dates: start: 20150505, end: 20150602
  26. AMIODARONE HYDROCHLORIDE. [Concomitant]
     Active Substance: AMIODARONE HYDROCHLORIDE
     Dosage: 200 MG, 1X/DAY
     Route: 048

REACTIONS (3)
  - Drug eruption [Recovered/Resolved]
  - Venous thrombosis limb [Recovered/Resolved]
  - Off label use [Unknown]

NARRATIVE: CASE EVENT DATE: 20150517
